FAERS Safety Report 8403483-5 (Version None)
Quarter: 2012Q2

REPORT INFORMATION
  Report Type: 
  Country: None (occurrence: None)
  Receive Date: 20120601
  Receipt Date: 20120528
  Transmission Date: 20120825
  Serious: Yes (Life-Threatening, Other)
  Sender: FDA-Public Use
  Company Number: GB-ASTRAZENECA-2012SE34190

PATIENT
  Sex: Female

DRUGS (3)
  1. OTHER TABLETS [Concomitant]
     Route: 048
  2. ATORVASTATIN CALCIUM [Concomitant]
     Dosage: AT NIGHT
  3. NEXIUM [Suspect]
     Route: 048
     Dates: start: 20100101

REACTIONS (2)
  - DIABETIC COMA [None]
  - MALAISE [None]
